FAERS Safety Report 8854787 (Version 1)
Quarter: 2012Q4

REPORT INFORMATION
  Report Type: Report from Study
  Country: DE (occurrence: GB)
  Receive Date: 20121023
  Receipt Date: 20121023
  Transmission Date: 20130627
  Serious: Yes (Hospitalization)
  Sender: FDA-Public Use
  Company Number: GB-BRISTOL-MYERS SQUIBB COMPANY-17034901

PATIENT
  Age: 75 Year
  Sex: Male

DRUGS (9)
  1. METFORMIN HCL [Suspect]
     Route: 048
     Dates: start: 20120403, end: 20120409
  2. ASPIRIN [Concomitant]
     Route: 048
     Dates: start: 2009
  3. BISOPROLOL [Concomitant]
     Indication: HYPERTENSION
     Route: 048
     Dates: start: 2009
  4. CANDESARTAN [Concomitant]
     Indication: HYPERTENSION
     Route: 048
     Dates: start: 2009, end: 20120401
  5. GAVISCON [Concomitant]
     Indication: DYSPEPSIA
     Route: 048
     Dates: start: 20120328
  6. INDAPAMIDE [Concomitant]
     Indication: HYPERTENSION
     Route: 048
     Dates: start: 2009, end: 20120411
  7. LOPERAMIDE [Concomitant]
     Indication: PROPHYLAXIS AGAINST DIARRHOEA
     Route: 048
     Dates: start: 20120328
  8. METOCLOPRAMIDE [Concomitant]
     Indication: NAUSEA
     Route: 048
     Dates: start: 20120328
  9. PRAVASTATINE [Concomitant]
     Indication: MYOCARDIAL ISCHAEMIA
     Route: 048
     Dates: start: 2009, end: 20120411

REACTIONS (1)
  - Renal impairment [Recovered/Resolved]
